FAERS Safety Report 7571520-6 (Version None)
Quarter: 2011Q2

REPORT INFORMATION
  Report Type: 
  Country: None (occurrence: None)
  Receive Date: 20110623
  Receipt Date: 20110623
  Transmission Date: 20111010
  Serious: Yes (Other)
  Sender: FDA-Public Use
  Company Number: None

PATIENT
  Sex: Female
  Weight: 98.8842 kg

DRUGS (1)
  1. SYNTHROID [Suspect]
     Indication: AUTOIMMUNE THYROIDITIS
     Dosage: 1 DAILY PO
     Route: 048
     Dates: start: 20110621, end: 20110621

REACTIONS (2)
  - HYPERTHYROIDISM [None]
  - PRODUCT QUALITY ISSUE [None]
